FAERS Safety Report 9127925 (Version 1)
Quarter: 2013Q1

REPORT INFORMATION
  Report Type: Spontaneous
  Country: US (occurrence: US)
  Receive Date: 20130228
  Receipt Date: 20130228
  Transmission Date: 20140127
  Serious: Yes (Other)
  Sender: FDA-Public Use
  Company Number: US-PFIZER INC-2013069953

PATIENT
  Age: 59 Year
  Sex: Female
  Weight: 51.2 kg

DRUGS (4)
  1. ESTRING [Suspect]
     Indication: ATROPHIC VULVOVAGINITIS
     Dosage: UNK
     Route: 067
     Dates: start: 201302
  2. PROZAC [Concomitant]
     Indication: DEPRESSION
     Dosage: 10 MG, 1X/DAY
     Route: 048
  3. TIROSINT [Concomitant]
     Indication: AUTOIMMUNE THYROIDITIS
     Dosage: 112 UG, 1X/DAY
     Route: 048
  4. CYTOMEL [Concomitant]
     Indication: AUTOIMMUNE THYROIDITIS
     Dosage: TWO 5 UG TABLETS, 1X/DAY
     Route: 048

REACTIONS (3)
  - Urinary tract infection [Not Recovered/Not Resolved]
  - Abdominal pain [Not Recovered/Not Resolved]
  - Drug ineffective [Not Recovered/Not Resolved]
